FAERS Safety Report 4337460-0 (Version None)
Quarter: 2004Q2

REPORT INFORMATION
  Report Type: 
  Country: None (occurrence: None)
  Receive Date: 20040407
  Receipt Date: 20040325
  Transmission Date: 20050107
  Serious: Yes (Hospitalization)
  Sender: FDA-Public Use
  Company Number: 2004016825

PATIENT
  Age: 58 Year
  Sex: Female

DRUGS (4)
  1. NORVASC [Suspect]
     Indication: HYPERTENSION
     Dosage: 5 MG (DAILY), ORAL
     Route: 048
     Dates: start: 20011001, end: 20040307
  2. LIPITOR [Suspect]
     Indication: HYPERLIPIDAEMIA
     Dosage: 10 MG (DAILY), ORAL
     Route: 048
     Dates: start: 20010601, end: 20040307
  3. DICKININ (CAFFEINE, CHLORPHENAMINE MALEATE, DIHYDROCODEINE PHOSPATE, M [Concomitant]
     Indication: NASOPHARYNGITIS
     Dosage: ORAL
     Route: 048
     Dates: start: 20040201, end: 20040201
  4. SAIREI-TO (HERBAL EXTRACTS NOS) [Concomitant]

REACTIONS (12)
  - ALANINE AMINOTRANSFERASE INCREASED [None]
  - ASPARTATE AMINOTRANSFERASE INCREASED [None]
  - ASTHENIA [None]
  - BLOOD ALKALINE PHOSPHATASE INCREASED [None]
  - BLOOD LACTATE DEHYDROGENASE INCREASED [None]
  - GAMMA-GLUTAMYLTRANSFERASE INCREASED [None]
  - HYPERTENSION [None]
  - JAUNDICE [None]
  - LEUKOCYTE ALKALINE PHOSPHATASE INCREASED [None]
  - LIVER DISORDER [None]
  - NASOPHARYNGITIS [None]
  - RASH PRURITIC [None]
